FAERS Safety Report 9213317 (Version 1)
Quarter: 2013Q2

REPORT INFORMATION
  Report Type: Spontaneous
  Country: BR (occurrence: BR)
  Receive Date: 20130405
  Receipt Date: 20130405
  Transmission Date: 20140414
  Serious: Yes (Other)
  Sender: FDA-Public Use
  Company Number: PHHY2013BR031681

PATIENT
  Age: 72 Year
  Sex: Male
  Weight: 85 kg

DRUGS (10)
  1. EXELON PATCH [Suspect]
     Indication: DEMENTIA ALZHEIMER^S TYPE
     Dosage: 4.6 MG, DAILY
     Route: 062
  2. EXELON PATCH [Suspect]
     Dosage: 9.5 MG, DAILY
     Route: 062
  3. DIOVAN AMLO FIX [Suspect]
     Indication: HYPERTENSION
     Dosage: 1 DF, DAILY
     Route: 048
     Dates: start: 2009
  4. ASPIRINA PREVENT [Concomitant]
     Indication: BLOOD VISCOSITY INCREASED
     Dosage: 1 DF, QD (AT LUNCH)
     Route: 048
  5. ATORVASTATIN [Concomitant]
     Indication: BLOOD CHOLESTEROL INCREASED
     Dosage: 1 DF, QD (AT NIGHT)
     Route: 048
  6. SUSTRATE [Concomitant]
     Dosage: 1 DF, TID
     Route: 048
  7. CLOPIDOGREL [Concomitant]
     Indication: HYPERTENSION
     Dosage: 1 DF, DAILY
     Route: 048
  8. AMLODIPINE [Concomitant]
     Dosage: 1 DF, DAILY
     Route: 048
  9. SELOZOK [Concomitant]
     Dosage: 1 DF, DAILY
     Route: 048
  10. ASCORBIC ACID (VITAMIN C), PLAIN [Concomitant]
     Indication: PROPHYLAXIS URINARY TRACT INFECTION
     Dosage: 1 DF, TID
     Route: 048

REACTIONS (2)
  - Infarction [Recovered/Resolved]
  - Abasia [Not Recovered/Not Resolved]
